FAERS Safety Report 18563872 (Version 1)
Quarter: 2020Q4

REPORT INFORMATION
  Report Type: Spontaneous
  Country: US (occurrence: US)
  Receive Date: 20201130
  Receipt Date: 20201130
  Transmission Date: 20210114
  Serious: Yes (Hospitalization)
  Sender: FDA-Public Use
  Company Number: None

PATIENT
  Age: 75 Year
  Sex: Male

DRUGS (22)
  1. ALBUTEROL. [Concomitant]
     Active Substance: ALBUTEROL
     Dates: start: 20201007
  2. MONTELULAST [Concomitant]
     Active Substance: MONTELUKAST SODIUM
     Dates: start: 20201001
  3. PROLIA [Suspect]
     Active Substance: DENOSUMAB
     Indication: OSTEOPOROSIS
     Dosage: ?          OTHER FREQUENCY:EVERY 6 MONTHS;?
     Route: 058
     Dates: start: 20200715
  4. LETAIRIS [Concomitant]
     Active Substance: AMBRISENTAN
     Dates: start: 20180407, end: 20190620
  5. METRONIDAZOL [Concomitant]
     Active Substance: METRONIDAZOLE
     Dates: start: 20200801
  6. AZELASTINE. [Concomitant]
     Active Substance: AZELASTINE HYDROCHLORIDE
     Dates: start: 20200417
  7. DICYCLOMINE [Concomitant]
     Active Substance: DICYCLOMINE HYDROCHLORIDE
     Dates: start: 20200801
  8. METHYLPREDNISONE [Concomitant]
     Active Substance: METHYLPREDNISOLONE
     Dates: start: 20200407
  9. ONDANSETRON [Concomitant]
     Active Substance: ONDANSETRON
     Dates: start: 20200801
  10. PREDNISONE. [Concomitant]
     Active Substance: PREDNISONE
     Dates: start: 20200106
  11. SERTRALINE [Concomitant]
     Active Substance: SERTRALINE HYDROCHLORIDE
     Dates: start: 20200918
  12. ELIQUIS [Concomitant]
     Active Substance: APIXABAN
     Dates: start: 20190606
  13. IPRATROPIUM/SOLUTION [Concomitant]
     Dates: start: 20200811
  14. POTASSIUM CHLORIDE. [Concomitant]
     Active Substance: POTASSIUM CHLORIDE
     Dates: start: 20200922
  15. PROLIA [Concomitant]
     Active Substance: DENOSUMAB
     Dates: start: 20200715
  16. AMBRISENTAN [Concomitant]
     Active Substance: AMBRISENTAN
     Dates: start: 20191010
  17. AMOX/CLAV [Concomitant]
     Active Substance: AMOXICILLIN\CLAVULANATE POTASSIUM
     Dates: start: 20200801
  18. ATORVASTATIN [Concomitant]
     Active Substance: ATORVASTATIN
     Dates: start: 20200827
  19. NYSTATIN SUSPENSION [Concomitant]
     Active Substance: NYSTATIN
     Dates: start: 20200103
  20. POLYETHL GLYC [Concomitant]
     Dates: start: 20200903
  21. DOXYCYCLINE HYCLATE. [Concomitant]
     Active Substance: DOXYCYCLINE HYCLATE
     Dates: start: 20200106
  22. GABAPENTIN. [Concomitant]
     Active Substance: GABAPENTIN
     Dates: start: 20200315

REACTIONS (1)
  - Diverticulitis [None]

NARRATIVE: CASE EVENT DATE: 20201101
